FAERS Safety Report 15848385 (Version 3)
Quarter: 2022Q1

REPORT INFORMATION
  Report Type: Spontaneous
  Country: US (occurrence: US)
  Receive Date: 20190121
  Receipt Date: 20220124
  Transmission Date: 20220423
  Serious: No
  Sender: FDA-Public Use
  Company Number: US-PFIZER INC-2019026192

PATIENT
  Age: 71 Year
  Sex: Female
  Weight: 53.061 kg

DRUGS (3)
  1. IBRANCE [Suspect]
     Active Substance: PALBOCICLIB
     Indication: Breast cancer
     Dosage: 125 MG, CYCLIC (DAILY, 1-21/DAYS)
     Route: 048
  2. IBRANCE [Suspect]
     Active Substance: PALBOCICLIB
     Dosage: 100 MG, CYCLIC (DAILY, 1-21 DAYS)
     Route: 048
     Dates: start: 20190116
  3. IBRANCE [Suspect]
     Active Substance: PALBOCICLIB
     Dosage: 75 MG, CYCLIC (TAKE ONE TABLET BY MOUTH ONCE DAILY FOR 14 DAYS ON THEN 14 DAYS)
     Route: 048

REACTIONS (9)
  - Abdominal discomfort [Unknown]
  - Haemorrhoids [Unknown]
  - Contusion [Unknown]
  - Immune system disorder [Unknown]
  - White blood cell count decreased [Unknown]
  - Alopecia [Unknown]
  - Asthenia [Unknown]
  - Fatigue [Unknown]
  - Off label use [Unknown]
